FAERS Safety Report 8663946 (Version 3)
Quarter: 2013Q4

REPORT INFORMATION
  Report Type: Report from Study
  Country: JP (occurrence: JP)
  Receive Date: 20120713
  Receipt Date: 20131108
  Transmission Date: 20140711
  Serious: Yes (Other)
  Sender: FDA-Public Use
  Company Number: JP-009507513-2011SP041748

PATIENT
  Age: 71 Year
  Sex: Female
  Weight: 40 kg

DRUGS (14)
  1. REBETOL [Suspect]
     Dosage: 200MG400MG IN EVENING IN MORNING
     Route: 048
     Dates: start: 20100621, end: 20100720
  2. REBETOL [Suspect]
     Dosage: 200 MG, BID
     Route: 048
     Dates: start: 20100721, end: 20100803
  3. REBETOL [Suspect]
     Dosage: 200 MG, QD
     Route: 048
     Dates: start: 20100804, end: 20110518
  4. INTERFERON BETA [Suspect]
     Indication: CHRONIC HEPATITIS C
     Dosage: 3 MILLION IU, BID
     Route: 041
     Dates: start: 20100621, end: 20100705
  5. INTERFERON BETA [Suspect]
     Dosage: 6 MILLION IU, QD
     Route: 041
     Dates: start: 20100706, end: 20100719
  6. INTERFERON BETA [Suspect]
     Dosage: 6 MILLION IU, TIW
     Route: 041
     Dates: start: 20100721, end: 20110518
  7. URSO [Concomitant]
     Indication: CHRONIC HEPATITIS C
     Dosage: 600 MG, UNK
     Route: 048
     Dates: start: 20060906
  8. URSO [Concomitant]
     Indication: HEPATITIS C
  9. ADALAT CR [Concomitant]
     Indication: HYPERTENSION
     Dosage: 40 MG, UNK
     Route: 048
     Dates: start: 20080123
  10. DEPAS [Concomitant]
     Indication: INSOMNIA
     Dosage: 0.5 MG, UNK
     Route: 048
     Dates: start: 20080910
  11. FERON [Suspect]
     Indication: HEPATITIS C
     Route: 041
     Dates: start: 20100621, end: 20100705
  12. FERON [Suspect]
     Route: 041
     Dates: start: 20100706, end: 20100719
  13. FERON [Suspect]
     Route: 041
     Dates: start: 20100721, end: 20110518
  14. ADALAT CR [Concomitant]
     Indication: HYPERTENSION
     Route: 048
     Dates: start: 20080123

REACTIONS (8)
  - Neutrophil count decreased [Recovered/Resolved]
  - Red blood cell count decreased [Recovered/Resolved]
  - Haemoglobin decreased [Recovered/Resolved]
  - Haematocrit decreased [Recovered/Resolved]
  - Pyrexia [Recovered/Resolved]
  - Depression [Recovering/Resolving]
  - Proteinuria [Recovered/Resolved]
  - Hyperkalaemia [Not Recovered/Not Resolved]
